FAERS Safety Report 17172191 (Version 1)
Quarter: 2019Q4

REPORT INFORMATION
  Report Type: Report from Study
  Country: US (occurrence: US)
  Receive Date: 20191218
  Receipt Date: 20191218
  Transmission Date: 20200122
  Serious: No
  Sender: FDA-Public Use
  Company Number: NVSC2019US069702

PATIENT
  Sex: Female

DRUGS (2)
  1. MAYZENT [Suspect]
     Active Substance: SIPONIMOD
     Indication: MULTIPLE SCLEROSIS
     Dosage: 0.25 MG,OTHER
     Route: 048
     Dates: start: 201911
  2. MAYZENT [Suspect]
     Active Substance: SIPONIMOD
     Dosage: 2 MG,QD
     Route: 048
     Dates: start: 201911

REACTIONS (2)
  - Lethargy [Unknown]
  - Dizziness [Unknown]
